FAERS Safety Report 8338883-5 (Version None)
Quarter: 2012Q2

REPORT INFORMATION
  Report Type: 
  Country: None (occurrence: None)
  Receive Date: 20120506
  Receipt Date: 20120426
  Transmission Date: 20120825
  Serious: Yes (Other)
  Sender: FDA-Public Use
  Company Number: US-VERTEX PHARMACEUTICALS INC.-AE-2012-006085

PATIENT
  Sex: Male

DRUGS (3)
  1. INCIVEK [Suspect]
     Indication: HEPATITIS C
     Route: 048
     Dates: start: 20111118, end: 20120210
  2. RIBAVIRIN [Concomitant]
     Indication: HEPATITIS C
     Dates: start: 20111118
  3. PEGASYS [Concomitant]
     Indication: HEPATITIS C
     Dates: start: 20111118

REACTIONS (4)
  - SUICIDAL IDEATION [None]
  - ANAEMIA [None]
  - RASH PRURITIC [None]
  - FATIGUE [None]
